FAERS Safety Report 9301679 (Version 1)
Quarter: 2013Q2

REPORT INFORMATION
  Report Type: Spontaneous
  Country: US (occurrence: None)
  Receive Date: 20130520
  Receipt Date: 20130520
  Transmission Date: 20140414
  Serious: Yes (Disabling)
  Sender: FDA-Public Use
  Company Number: None

PATIENT
  Age: 53 Year
  Sex: Female
  Weight: 61.24 kg

DRUGS (1)
  1. LUPRON DEPOT + ADD BACK [Suspect]
     Indication: ENDOMETRIOSIS
     Dosage: 3.75 MG  3MONTH /  TIME SHOT
     Dates: start: 2010

REACTIONS (3)
  - Pain in extremity [None]
  - Arthralgia [None]
  - Weight increased [None]
